FAERS Safety Report 9254396 (Version 2)
Quarter: 2014Q1

REPORT INFORMATION
  Report Type: Spontaneous
  Country: US (occurrence: None)
  Receive Date: 20121210
  Receipt Date: 20130606
  Transmission Date: 20141002
  Serious: No
  Sender: FDA-Public Use
  Company Number: 1211USA000886

PATIENT
  Age: 62 Year
  Sex: Female

DRUGS (1)
  1. ZIOPTAN [Suspect]
     Indication: GLAUCOMA
     Dosage: 1 NIGHT ONLY, OPHTHALMIC?
     Route: 047
     Dates: start: 201206, end: 201206

REACTIONS (1)
  - Dizziness [None]
